FAERS Safety Report 8544617-1 (Version None)
Quarter: 2012Q2

REPORT INFORMATION
  Report Type: 
  Country: None (occurrence: None)
  Receive Date: 20120416
  Receipt Date: 20101108
  Transmission Date: 20120825
  Serious: Yes (Other)
  Sender: FDA-Public Use
  Company Number: PHHY2010US76602

PATIENT
  Age: 66 Year
  Sex: Female

DRUGS (3)
  1. HYDROCHLOROTHIAZIDE [Concomitant]
  2. AMLODIPINE BESYLATE [Concomitant]
  3. DIOVAN [Suspect]
     Dosage: 320 MG

REACTIONS (4)
  - DEPRESSED MOOD [None]
  - HYPOTENSION [None]
  - ASTHENIA [None]
  - FEELING ABNORMAL [None]
